FAERS Safety Report 20433779 (Version 1)
Quarter: 2022Q1

REPORT INFORMATION
  Report Type: Report from Study
  Country: FR (occurrence: FR)
  Receive Date: 20220205
  Receipt Date: 20220205
  Transmission Date: 20220423
  Serious: Yes (Death)
  Sender: FDA-Public Use
  Company Number: FR-SA-2022SA033224

PATIENT
  Age: 27 Year
  Sex: Male

DRUGS (9)
  1. PREGABALIN [Suspect]
     Active Substance: PREGABALIN
     Dosage: UNK
  2. CLONAZEPAM [Suspect]
     Active Substance: CLONAZEPAM
     Dosage: UNK
  3. DOXYLAMINE SUCCINATE [Suspect]
     Active Substance: DOXYLAMINE SUCCINATE
     Dosage: UNK
  4. LODENOSINE [Suspect]
     Active Substance: LODENOSINE
     Dosage: UNK
  5. PROPOFOL [Suspect]
     Active Substance: PROPOFOL
     Dosage: UNK
  6. REMIFENTANIL [Suspect]
     Active Substance: REMIFENTANIL
     Dosage: UNK
  7. LEVAMISOLE [Suspect]
     Active Substance: LEVAMISOLE
  8. BENZOYLECGONINE [Suspect]
     Active Substance: BENZOYLECGONINE
  9. ECGONINE METHYL ESTER [Suspect]
     Active Substance: ECGONINE METHYL ESTER

REACTIONS (4)
  - Infection [Fatal]
  - Intentional product misuse [Fatal]
  - Toxicity to various agents [Fatal]
  - Drug level above therapeutic [Fatal]
